FAERS Safety Report 7447166-7 (Version None)
Quarter: 2011Q2

REPORT INFORMATION
  Report Type: 
  Country: None (occurrence: None)
  Receive Date: 20110429
  Receipt Date: 20101209
  Transmission Date: 20111010
  Serious: No
  Sender: FDA-Public Use
  Company Number: US-ASTRAZENECA-2010SE58385

PATIENT
  Sex: Female

DRUGS (4)
  1. NEXIUM [Suspect]
     Indication: GASTRITIS
     Route: 048
     Dates: start: 20100101
  2. BLOOD PRESSURE MEDS [Concomitant]
  3. NEXIUM [Suspect]
     Indication: FLATULENCE
     Route: 048
     Dates: start: 20100101
  4. NEXIUM [Suspect]
     Indication: GASTROOESOPHAGEAL REFLUX DISEASE
     Route: 048
     Dates: start: 20100101

REACTIONS (2)
  - DYSPEPSIA [None]
  - THERAPEUTIC RESPONSE UNEXPECTED [None]
